FAERS Safety Report 14896650 (Version 2)
Quarter: 2018Q2

REPORT INFORMATION
  Report Type: Spontaneous
  Country: DE (occurrence: DE)
  Receive Date: 20180515
  Receipt Date: 20180521
  Transmission Date: 20180711
  Serious: Yes (Hospitalization)
  Sender: FDA-Public Use
  Company Number: DE-PFIZER INC-2018195352

PATIENT
  Age: 64 Year
  Sex: Male

DRUGS (23)
  1. ROFLUMILAST. [Concomitant]
     Active Substance: ROFLUMILAST
     Dosage: 500 MG, QD
  2. GLYCEROLTRINITRATE [Concomitant]
     Dosage: UNK
  3. CLOPIDOGREL [Concomitant]
     Active Substance: CLOPIDOGREL BISULFATE
     Dosage: 75 MG, QD
  4. ZOPICLONE [Concomitant]
     Active Substance: ZOPICLONE
     Dosage: 7.5 MG, QD
  5. RANOLAZINE. [Concomitant]
     Active Substance: RANOLAZINE
     Dosage: UNK, BID
  6. MAGALDRATE [Interacting]
     Active Substance: MAGALDRATE
     Dosage: UNK
     Route: 065
  7. METAMIZOL [Concomitant]
     Active Substance: METAMIZOLE SODIUM
     Dosage: 500 MG, QID
  8. NITRENDIPINE [Concomitant]
     Active Substance: NITRENDIPINE
     Dosage: 20 MG, BID
  9. ACETYLSALICYLSAEURE [Concomitant]
     Active Substance: ASPIRIN
     Dosage: 100 MG, QD
  10. URAPIDIL [Concomitant]
     Active Substance: URAPIDIL
     Dosage: 90 MG, QID
  11. METOPROLOL. [Concomitant]
     Active Substance: METOPROLOL
     Dosage: 95 MG, BID
  12. MOXONIDINE [Concomitant]
     Active Substance: MOXONIDINE
     Dosage: 0.2 MG, BID
  13. VALSARTAN. [Concomitant]
     Active Substance: VALSARTAN
     Dosage: 160 MG, BID
  14. MACROGOL [Concomitant]
     Active Substance: POLYETHYLENE GLYCOLS
     Dosage: UNK, QD
  15. BUDESONIDE W/FORMOTEROL [Concomitant]
     Active Substance: BUDESONIDE\FORMOTEROL
     Dosage: UNK UNK, BID
  16. PANTOPRAZOLE [Suspect]
     Active Substance: PANTOPRAZOLE
     Dosage: 40 MG, DAILY
     Route: 065
  17. SIMVASTATIN. [Concomitant]
     Active Substance: SIMVASTATIN
     Dosage: 20 MG, QD
  18. TORASEMID [Concomitant]
     Active Substance: TORSEMIDE
     Dosage: 10 MG, BID
  19. IPRATROPIUM BROMIDE. [Concomitant]
     Active Substance: IPRATROPIUM BROMIDE
     Dosage: UNK UNK, TID
  20. LORAZEPAM. [Concomitant]
     Active Substance: LORAZEPAM
     Dosage: UNK
  21. CARBOMER [Concomitant]
     Active Substance: CARBOMER
     Dosage: UNK, BID
  22. METOCLOPRAMIDE. [Concomitant]
     Active Substance: METOCLOPRAMIDE
     Dosage: UNK
  23. SALBUTAMOL [Concomitant]
     Active Substance: ALBUTEROL
     Dosage: UNK UNK, QID

REACTIONS (2)
  - Hypertension [Unknown]
  - Labelled drug-drug interaction medication error [Unknown]

NARRATIVE: CASE EVENT DATE: 20160304
